FAERS Safety Report 8602455-5 (Version None)
Quarter: 2012Q3

REPORT INFORMATION
  Report Type: 
  Country: None (occurrence: None)
  Receive Date: 20120817
  Receipt Date: 19960708
  Transmission Date: 20120928
  Serious: Yes (Other)
  Sender: FDA-Public Use
  Company Number: US-ROCHE-1100722

PATIENT
  Sex: Male

DRUGS (1)
  1. ACTIVASE [Suspect]
     Indication: ACUTE MYOCARDIAL INFARCTION

REACTIONS (7)
  - VENTRICULAR FIBRILLATION [None]
  - BACK PAIN [None]
  - HYPERTENSION [None]
  - CHEST PAIN [None]
  - BRADYCARDIA [None]
  - NAUSEA [None]
  - ELECTROCARDIOGRAM ST SEGMENT ABNORMAL [None]
